FAERS Safety Report 6917783-9 (Version None)
Quarter: 2010Q3

REPORT INFORMATION
  Report Type: 
  Country: None (occurrence: None)
  Receive Date: 20100810
  Receipt Date: 20100730
  Transmission Date: 20110219
  Serious: Yes (Death)
  Sender: FDA-Public Use
  Company Number: BR-PFIZER INC-2010095931

PATIENT
  Sex: Female

DRUGS (1)
  1. VIAGRA [Suspect]
     Dosage: UNK
     Route: 048
     Dates: start: 20000101

REACTIONS (1)
  - DEATH [None]
